FAERS Safety Report 8961294 (Version 1)
Quarter: 2012Q4

REPORT INFORMATION
  Report Type: 
  Country: US (occurrence: US)
  Receive Date: 20121213
  Receipt Date: 20121213
  Transmission Date: 20130627
  Serious: Yes (Hospitalization)
  Sender: FDA-Public Use
  Company Number: US-BAYER-2012-127971

PATIENT
  Age: 25 Year
  Sex: Female

DRUGS (7)
  1. YASMIN [Suspect]
  2. HEMIN [Concomitant]
  3. DILAUDID [Concomitant]
  4. PHENERGAN [Concomitant]
     Indication: NAUSEA
  5. ZOFRAN [Concomitant]
     Indication: NAUSEA
  6. KEFZOL [Concomitant]
  7. INTRAVENOUS FLUIDS [Concomitant]

REACTIONS (4)
  - Subclavian vein thrombosis [None]
  - Jugular vein thrombosis [None]
  - Thrombophlebitis superficial [None]
  - Axillary vein thrombosis [None]
